FAERS Safety Report 13010676 (Version 4)
Quarter: 2017Q3

REPORT INFORMATION
  Report Type: Report from Study
  Country: US (occurrence: US)
  Receive Date: 20161208
  Receipt Date: 20170707
  Transmission Date: 20171127
  Serious: No
  Sender: FDA-Public Use
  Company Number: US-ALLERGAN-1679624US

PATIENT
  Age: 86 Year
  Sex: Female

DRUGS (1)
  1. BIMATOPROST 0.01% SOL (9668X) [Suspect]
     Active Substance: BIMATOPROST
     Indication: INTRAOCULAR PRESSURE INCREASED
     Dosage: 2 GTT, QHS
     Route: 047

REACTIONS (4)
  - Drug dose omission [Unknown]
  - Cataract [Unknown]
  - Anxiety [Not Recovered/Not Resolved]
  - Stress [Not Recovered/Not Resolved]
